FAERS Safety Report 18156793 (Version 1)
Quarter: 2020Q3

REPORT INFORMATION
  Report Type: Spontaneous
  Country: US (occurrence: US)
  Receive Date: 20200817
  Receipt Date: 20200817
  Transmission Date: 20201103
  Serious: Yes (Disabling)
  Sender: FDA-Public Use
  Company Number: None

PATIENT
  Age: 41 Year
  Sex: Female
  Weight: 80.1 kg

DRUGS (4)
  1. AJOVY [Suspect]
     Active Substance: FREMANEZUMAB-VFRM
     Indication: MIGRAINE
     Dosage: ?          QUANTITY:1.5 INJECTION(S);OTHER FREQUENCY:ONCE EVERY 30 DAYS;?
     Route: 030
     Dates: start: 20200419, end: 20200805
  2. LIOTHYRONINE [Concomitant]
     Active Substance: LIOTHYRONINE
  3. LEVOTHYROXINE. [Concomitant]
     Active Substance: LEVOTHYROXINE
  4. TOPIROMATE [Concomitant]

REACTIONS (1)
  - Cough [None]

NARRATIVE: CASE EVENT DATE: 20200805
